FAERS Safety Report 8570377-4 (Version None)
Quarter: 2012Q3

REPORT INFORMATION
  Report Type: 
  Country: None (occurrence: None)
  Receive Date: 20120803
  Receipt Date: 20120725
  Transmission Date: 20120928
  Serious: Yes (Other)
  Sender: FDA-Public Use
  Company Number: US-ELI_LILLY_AND_COMPANY-US201207007800

PATIENT
  Sex: Female
  Weight: 65.76 kg

DRUGS (7)
  1. CARVEDILOL [Concomitant]
     Dosage: 3.125 MG, BID
     Route: 048
  2. EFFIENT [Concomitant]
     Dosage: 10 MG, QD
     Route: 048
  3. PANTOPRAZOLE [Concomitant]
     Dosage: 40 MG, QD
     Route: 048
  4. ATORVASTATIN [Concomitant]
     Dosage: 20 MG, QD
     Route: 048
  5. ASPIRIN                                 /USA/ [Concomitant]
     Dosage: 81 MG, QD
     Route: 048
  6. WELLBUTRIN [Concomitant]
     Dosage: 300 MG, QD
     Route: 048
  7. BYDUREON [Suspect]
     Indication: TYPE 2 DIABETES MELLITUS
     Dosage: 2 MG, WEEKLY (1/W)
     Route: 058
     Dates: start: 20120716

REACTIONS (3)
  - DIARRHOEA HAEMORRHAGIC [None]
  - ABDOMINAL PAIN [None]
  - DIARRHOEA [None]
